FAERS Safety Report 8711423 (Version 3)
Quarter: 2012Q4

REPORT INFORMATION
  Report Type: Spontaneous
  Country: US (occurrence: None)
  Receive Date: 20120723
  Receipt Date: 20121003
  Transmission Date: 20130627
  Serious: Yes (Death)
  Sender: FDA-Public Use
  Company Number: DSA_58513_2012

PATIENT
  Sex: Male

DRUGS (18)
  1. XENAZINE [Suspect]
     Indication: HUNTINGTON^S DISEASE
     Route: 048
     Dates: start: 20111020, end: 20120715
  2. EFFEXOR XR [Concomitant]
  3. MOTRIN [Concomitant]
  4. HALOPERIDOL LACTATE [Concomitant]
  5. ATIVAN [Concomitant]
  6. VENLAFAXINE [Concomitant]
  7. MULTIVITAMINS WITH MINERALS [Concomitant]
  8. HALDOL [Concomitant]
  9. TYLENOL REGULAR [Concomitant]
  10. KLONOPIN [Concomitant]
  11. COLACE [Concomitant]
  12. DUONEB [Concomitant]
  13. PROVENTIL [Concomitant]
  14. TUMS E-X [Concomitant]
  15. NEURONTIN [Concomitant]
  16. DELTASONE [Concomitant]
  17. ARTIFICIAL TEARS [Concomitant]
  18. BISAC EVAC [Concomitant]

REACTIONS (1)
  - Death [None]
